FAERS Safety Report 15352050 (Version 2)
Quarter: 2018Q4

REPORT INFORMATION
  Report Type: Report from Study
  Country: UY (occurrence: UY)
  Receive Date: 20180905
  Receipt Date: 20181008
  Transmission Date: 20190204
  Serious: Yes (Other)
  Sender: FDA-Public Use
  Company Number: UY-SA-2018SA237986

PATIENT
  Age: 25 Year
  Sex: Male

DRUGS (1)
  1. INSULIN GLARGINE [Suspect]
     Active Substance: INSULIN GLARGINE
     Dosage: 18 IU, QD
     Route: 058
     Dates: start: 201803

REACTIONS (4)
  - Pulmonary tuberculosis [Recovering/Resolving]
  - Hyperglycaemia [Unknown]
  - Pyrexia [Unknown]
  - Night sweats [Unknown]

NARRATIVE: CASE EVENT DATE: 20180801
